FAERS Safety Report 12242973 (Version 1)
Quarter: 2016Q2

REPORT INFORMATION
  Report Type: Spontaneous
  Country: US (occurrence: US)
  Receive Date: 20160406
  Receipt Date: 20160406
  Transmission Date: 20160815
  Serious: Yes (Other)
  Sender: FDA-Public Use
  Company Number: US-ELI_LILLY_AND_COMPANY-US201303006617

PATIENT
  Sex: Male

DRUGS (3)
  1. CYMBALTA [Suspect]
     Active Substance: DULOXETINE HYDROCHLORIDE
     Indication: PAIN
  2. CYMBALTA [Suspect]
     Active Substance: DULOXETINE HYDROCHLORIDE
     Indication: DEPRESSION
     Dosage: 90 MG, UNKNOWN
     Route: 065
     Dates: start: 2007, end: 201303
  3. CYMBALTA [Suspect]
     Active Substance: DULOXETINE HYDROCHLORIDE
     Indication: HEADACHE

REACTIONS (7)
  - Drug withdrawal syndrome [Unknown]
  - Agitation [Unknown]
  - Paraesthesia [Unknown]
  - Suicidal ideation [Unknown]
  - Irritability [Unknown]
  - Insomnia [Unknown]
  - Mood swings [Unknown]
